FAERS Safety Report 6357412-9 (Version None)
Quarter: 2009Q3

REPORT INFORMATION
  Report Type: 
  Country: None (occurrence: None)
  Receive Date: 20090916
  Receipt Date: 20090731
  Transmission Date: 20100115
  Serious: No
  Sender: FDA-Public Use
  Company Number: A0799890A

PATIENT
  Sex: Female

DRUGS (3)
  1. AVANDARYL [Suspect]
     Route: 048
  2. METFORMIN HCL [Concomitant]
  3. INSULIN [Concomitant]

REACTIONS (2)
  - DYSPNOEA [None]
  - SWELLING [None]
